FAERS Safety Report 11771646 (Version 1)
Quarter: 2015Q4

REPORT INFORMATION
  Report Type: Spontaneous
  Country: NZ (occurrence: NZ)
  Receive Date: 20151124
  Receipt Date: 20151124
  Transmission Date: 20160304
  Serious: Yes (Other)
  Sender: FDA-Public Use
  Company Number: NZ-SA-2015SA190585

PATIENT
  Age: 52 Year
  Sex: Male

DRUGS (2)
  1. BCG FOR IMMUNOTHERAPY [Suspect]
     Active Substance: BACILLUS CALMETTE-GUERIN ANTIGEN, UNSPECIFIED SUBSTRAIN
     Indication: BLADDER CANCER
     Route: 043
  2. INTERFERON ALFA-2B [Suspect]
     Active Substance: INTERFERON ALFA-2B
     Indication: BLADDER CANCER
     Route: 065

REACTIONS (3)
  - Bladder cancer [Recovered/Resolved]
  - Disease progression [Recovered/Resolved]
  - Drug ineffective [Unknown]
